FAERS Safety Report 15414439 (Version 1)
Quarter: 2018Q3

REPORT INFORMATION
  Report Type: Report from Study
  Country: US (occurrence: US)
  Receive Date: 20180921
  Receipt Date: 20180921
  Transmission Date: 20181010
  Serious: Yes (Other)
  Sender: FDA-Public Use
  Company Number: PHEH2018US038640

PATIENT
  Age: 34 Year
  Sex: Female

DRUGS (3)
  1. ENTRESTO [Suspect]
     Active Substance: SACUBITRIL\VALSARTAN
     Dosage: 150 MG (24/26 MG IN THE MORNING AND 45/51 MG AT NIGHT)
     Route: 048
  2. ENTRESTO [Suspect]
     Active Substance: SACUBITRIL\VALSARTAN
     Dosage: 1 DF (SACUBITRIL 24/ VALSARTAN 26MG), BID
     Route: 048
  3. ENTRESTO [Suspect]
     Active Substance: SACUBITRIL\VALSARTAN
     Indication: CARDIAC FAILURE CHRONIC
     Dosage: 1 DF (SACUBITRIL 24/ VALSARTAN 26MG), BID
     Route: 048
     Dates: start: 20180101

REACTIONS (7)
  - Ejection fraction decreased [Recovering/Resolving]
  - Blood pressure decreased [Recovered/Resolved]
  - Fatigue [Recovering/Resolving]
  - Congestive cardiomyopathy [Unknown]
  - Pollakiuria [Unknown]
  - Dyspnoea [Recovering/Resolving]
  - Dizziness [Unknown]

NARRATIVE: CASE EVENT DATE: 20180301
